FAERS Safety Report 10253871 (Version 2)
Quarter: 2014Q3

REPORT INFORMATION
  Report Type: Spontaneous
  Country: CN (occurrence: CN)
  Receive Date: 20140623
  Receipt Date: 20140715
  Transmission Date: 20150326
  Serious: Yes (Other)
  Sender: FDA-Public Use
  Company Number: CN-GILEAD-2014-0106114

PATIENT
  Age: 35 Year
  Sex: Female

DRUGS (3)
  1. HEPSERA [Suspect]
     Active Substance: ADEFOVIR DIPIVOXIL
     Indication: CHRONIC HEPATITIS
     Dosage: 1TAB PER DAY
     Route: 048
  2. ENTECAVIR [Suspect]
     Active Substance: ENTECAVIR
     Indication: CHRONIC HEPATITIS
     Route: 065
  3. HEPSERA [Suspect]
     Active Substance: ADEFOVIR DIPIVOXIL
     Dosage: 1TAB PER DAY
     Route: 048

REACTIONS (4)
  - Live birth [Unknown]
  - Drug resistance [Unknown]
  - Exposure during pregnancy [Unknown]
  - Osteoporosis [Not Recovered/Not Resolved]
